FAERS Safety Report 8799665 (Version 3)
Quarter: 2013Q1

REPORT INFORMATION
  Report Type: Spontaneous
  Country: US (occurrence: US)
  Receive Date: 20120919
  Receipt Date: 20130117
  Transmission Date: 20140127
  Serious: No
  Sender: FDA-Public Use
  Company Number: US-009507513-1209USA006317

PATIENT
  Age: 15 Year
  Sex: Female

DRUGS (8)
  1. SAPHRIS [Suspect]
     Indication: BIPOLAR DISORDER
     Dosage: 5 MG, ONCE
     Route: 060
     Dates: start: 20120824, end: 20120825
  2. ABREVA [Concomitant]
  3. DEPAKOTE [Concomitant]
  4. AMANTADINE HYDROCHLORIDE [Concomitant]
  5. KLONOPIN [Concomitant]
  6. PROPRANOLOL HYDROCHLORIDE [Concomitant]
  7. LEVOTHYROXINE SODIUM [Concomitant]
  8. METFORMIN [Concomitant]

REACTIONS (3)
  - Blister [Recovered/Resolved]
  - Pain [Unknown]
  - Scar [Unknown]
